FAERS Safety Report 8760934 (Version 1)
Quarter: 2012Q4

REPORT INFORMATION
  Report Type: 
  Country: US (occurrence: US)
  Receive Date: 20120830
  Receipt Date: 20120830
  Transmission Date: 20130627
  Serious: Yes (Hospitalization, Other)
  Sender: FDA-Public Use
  Company Number: US-FRI-1000038136

PATIENT
  Age: 44 Year
  Sex: Female

DRUGS (7)
  1. LEXAPRO [Suspect]
     Indication: DEPRESSION
     Dates: start: 2007, end: 2007
  2. LEXAPRO [Suspect]
     Dates: start: 2007, end: 2007
  3. TOPAMAX [Concomitant]
     Indication: CONVULSION
  4. SOMA [Concomitant]
  5. HYDROCODONE [Concomitant]
     Indication: PAIN
  6. DETROL [Concomitant]
  7. PROVIGIL [Concomitant]

REACTIONS (6)
  - Suicidal ideation [Recovered/Resolved]
  - Impaired driving ability [Recovered/Resolved]
  - Somnolence [Recovered/Resolved]
  - Feeling abnormal [Recovered/Resolved]
  - Anger [Recovered/Resolved]
  - Crying [Recovered/Resolved]
